FAERS Safety Report 23579859 (Version 1)
Quarter: 2024Q1

REPORT INFORMATION
  Report Type: Spontaneous
  Country: FR (occurrence: FR)
  Receive Date: 20240229
  Receipt Date: 20240229
  Transmission Date: 20240410
  Serious: Yes (Death)
  Sender: FDA-Public Use
  Company Number: None

PATIENT
  Age: 73 Year
  Sex: Male
  Weight: 74 kg

DRUGS (9)
  1. DICLOFENAC [Suspect]
     Active Substance: DICLOFENAC
     Indication: Product used for unknown indication
     Dosage: TEVA
     Route: 048
     Dates: start: 20231213, end: 20231220
  2. PREDNISOLONE SODIUM METAZOATE [Suspect]
     Active Substance: PREDNISOLONE SODIUM METAZOATE
     Indication: Superior vena cava syndrome
     Route: 048
     Dates: start: 20231215, end: 20231216
  3. PREDNISOLONE SODIUM METAZOATE [Suspect]
     Active Substance: PREDNISOLONE SODIUM METAZOATE
     Indication: Superior vena cava syndrome
     Route: 048
     Dates: start: 20231217, end: 20231219
  4. KARDEGIC [Suspect]
     Active Substance: ASPIRIN DL-LYSINE
     Indication: Myocardial ischaemia
     Dosage: POWDER FOR ORAL SOLUTION IN SACHET-DOSE
     Route: 048
     Dates: start: 20231201, end: 20231221
  5. KEYTRUDA [Suspect]
     Active Substance: PEMBROLIZUMAB
     Indication: Adenocarcinoma
     Dosage: TIME INTERVAL: TOTAL
     Route: 042
     Dates: start: 20231215, end: 20231215
  6. METHYLPREDNISOLONE [Suspect]
     Active Substance: METHYLPREDNISOLONE
     Indication: Superior vena cava syndrome
     Dosage: VIATRIS
     Route: 042
     Dates: start: 20231130, end: 20231207
  7. PREDNISONE [Suspect]
     Active Substance: PREDNISONE
     Indication: Superior vena cava syndrome
     Route: 048
     Dates: start: 20231207, end: 20231213
  8. CARBOPLATIN [Suspect]
     Active Substance: CARBOPLATIN
     Indication: Adenocarcinoma
     Dosage: TIME INTERVAL: 1 TOTAL: ACCORD
     Route: 042
     Dates: start: 20231215, end: 20231215
  9. PEMETREXED [Suspect]
     Active Substance: PEMETREXED
     Indication: Adenocarcinoma
     Dosage: TIME INTERVAL: 1 TOTAL: EVER PHARMA
     Route: 042
     Dates: start: 20231215, end: 20231215

REACTIONS (1)
  - Duodenal perforation [Fatal]

NARRATIVE: CASE EVENT DATE: 20231220
